FAERS Safety Report 8571999-7 (Version None)
Quarter: 2012Q3

REPORT INFORMATION
  Report Type: 
  Country: None (occurrence: None)
  Receive Date: 20120806
  Receipt Date: 20120726
  Transmission Date: 20120928
  Serious: Yes (Hospitalization)
  Sender: FDA-Public Use
  Company Number: CH-SANOFI-AVENTIS-2012SA053578

PATIENT
  Age: 66 Year
  Sex: Female

DRUGS (9)
  1. LORAZEPAM [Interacting]
     Route: 048
     Dates: start: 20120327
  2. ESOMEPRAZOLE MAGNESIUM [Concomitant]
     Route: 048
  3. TILUR [Concomitant]
     Route: 048
  4. ACETAMINOPHEN [Concomitant]
     Route: 048
  5. VALIUM [Interacting]
     Route: 048
     Dates: start: 20120320, end: 20120326
  6. CALCIPARINE [Concomitant]
     Route: 040
  7. BUPRENORPHINE HCL [Interacting]
     Dosage: DOSING REGIMEN: TOTAL FIVE
     Route: 060
     Dates: start: 20120327, end: 20120328
  8. BUPRENORPHINE HCL [Interacting]
     Dosage: DOSE REDUCED
     Route: 065
  9. ZOLPIDEM TARTRATE [Suspect]
     Route: 048
     Dates: start: 20120327

REACTIONS (9)
  - CONFUSIONAL STATE [None]
  - SOMNOLENCE [None]
  - MIOSIS [None]
  - OXYGEN SATURATION DECREASED [None]
  - RESPIRATORY DISTRESS [None]
  - BRADYPNOEA [None]
  - DRUG INTERACTION [None]
  - MUSCLE TIGHTNESS [None]
  - MEDICATION ERROR [None]
